FAERS Safety Report 8713813 (Version 5)
Quarter: 2013Q3

REPORT INFORMATION
  Report Type: Spontaneous
  Country: US (occurrence: None)
  Receive Date: 20120727
  Receipt Date: 20130904
  Transmission Date: 20140515
  Serious: Yes (Hospitalization, Other)
  Sender: FDA-Public Use
  Company Number: ACO_31097_2012

PATIENT
  Age: 85 Year
  Sex: Female
  Weight: 63.5 kg

DRUGS (5)
  1. AMPYRA [Suspect]
     Indication: BALANCE DISORDER
     Dosage: 10 MG, TOOK 3 TIMES A WEEK, ORAL
     Route: 048
     Dates: start: 20110706, end: 201107
  2. ANTIHYPERTENSIVES [Concomitant]
  3. ALL OTHER THERAPEUTIC PRODUCTS [Concomitant]
  4. ANIDEPRESSANTS [Concomitant]
  5. ALL OTHER THERAPEUTIC PRODUCTS [Concomitant]

REACTIONS (14)
  - Convulsion [None]
  - Amnesia [None]
  - Confusional state [None]
  - Urinary tract infection [None]
  - Inappropriate schedule of drug administration [None]
  - Cerebrovascular accident [None]
  - Delusional disorder, unspecified type [None]
  - Depression [None]
  - Tremor [None]
  - Panic disorder [None]
  - Agitation [None]
  - Disorientation [None]
  - Drug ineffective [None]
  - Pollakiuria [None]
